FAERS Safety Report 4413832-0 (Version None)
Quarter: 2004Q3

REPORT INFORMATION
  Report Type: 
  Country: None (occurrence: None)
  Receive Date: 20040728
  Receipt Date: 20040723
  Transmission Date: 20050211
  Serious: Yes (Other)
  Sender: FDA-Public Use
  Company Number: KII-1999-0011430

PATIENT
  Sex: Female

DRUGS (1)
  1. MS CONTIN [Suspect]
     Dosage: Q4H

REACTIONS (2)
  - COMA [None]
  - MEDICATION ERROR [None]
